FAERS Safety Report 5097301-3 (Version None)
Quarter: 2006Q3

REPORT INFORMATION
  Report Type: 
  Country: None (occurrence: None)
  Receive Date: 20060906
  Receipt Date: 20060815
  Transmission Date: 20061208
  Serious: Yes (Other)
  Sender: FDA-Public Use
  Company Number: PHBS2006BR12359

PATIENT
  Age: 7 Year
  Sex: Female

DRUGS (3)
  1. ELIDEL [Suspect]
     Indication: VITILIGO
     Dosage: UNK, QD, INTERMITTENTLY
     Route: 061
  2. PROTOPIC [Concomitant]
     Indication: VITILIGO
     Dosage: INTERMITTTENTLY
     Route: 061
  3. SUNSCREEN AGENTS [Concomitant]

REACTIONS (3)
  - BASAL CELL CARCINOMA [None]
  - SKIN NEOPLASM EXCISION [None]
  - THYROID NEOPLASM [None]
